FAERS Safety Report 24703505 (Version 3)
Quarter: 2025Q2

REPORT INFORMATION
  Report Type: Spontaneous
  Country: US (occurrence: US)
  Receive Date: 20241205
  Receipt Date: 20250605
  Transmission Date: 20250717
  Serious: Yes (Hospitalization, Other)
  Sender: NOVEN
  Company Number: US-NOVEN PHARMACEUTICALS, INC.-2024-NOV-US001602

PATIENT
  Sex: Female
  Weight: 77.234 kg

DRUGS (20)
  1. MINIVELLE [Suspect]
     Active Substance: ESTRADIOL
     Indication: Product used for unknown indication
     Route: 062
  2. REMODULIN [Suspect]
     Active Substance: TREPROSTINIL
     Indication: Pulmonary arterial hypertension
     Route: 058
     Dates: start: 20150903
  3. REMODULIN [Suspect]
     Active Substance: TREPROSTINIL
     Route: 058
  4. REMODULIN [Suspect]
     Active Substance: TREPROSTINIL
     Route: 058
  5. REMODULIN [Suspect]
     Active Substance: TREPROSTINIL
     Route: 058
  6. REMODULIN [Suspect]
     Active Substance: TREPROSTINIL
     Route: 058
  7. OXYGEN [Suspect]
     Active Substance: OXYGEN
     Indication: Product used for unknown indication
     Route: 065
  8. VIVELLE-DOT [Suspect]
     Active Substance: ESTRADIOL
     Indication: Product used for unknown indication
     Route: 065
  9. IBUPROFEN [Concomitant]
     Active Substance: IBUPROFEN
     Indication: Product used for unknown indication
     Route: 065
  10. FLUTICASONE PROPIONATE [Concomitant]
     Active Substance: FLUTICASONE PROPIONATE
     Indication: Product used for unknown indication
     Route: 065
  11. SYSTANE (HYPROMELLOSE 2910 (4000 MPA.S)) [Concomitant]
     Active Substance: HYPROMELLOSE 2910 (4000 MPA.S)
     Indication: Product used for unknown indication
     Route: 065
  12. VOLTAREN ARTHRITIS PAIN [Concomitant]
     Active Substance: DICLOFENAC SODIUM
     Indication: Product used for unknown indication
     Route: 065
  13. OXYCODONE HYDROCHLORIDE [Concomitant]
     Active Substance: OXYCODONE HYDROCHLORIDE
     Indication: Product used for unknown indication
     Route: 065
  14. SODIUM CHLORIDE [Concomitant]
     Active Substance: SODIUM CHLORIDE
     Indication: Product used for unknown indication
     Route: 065
  15. POTASSIUM [Concomitant]
     Active Substance: POTASSIUM
     Indication: Product used for unknown indication
     Route: 065
  16. BENADRYL [Concomitant]
     Active Substance: DIPHENHYDRAMINE HYDROCHLORIDE
     Indication: Product used for unknown indication
     Route: 065
  17. GABAPENTIN [Concomitant]
     Active Substance: GABAPENTIN
     Indication: Product used for unknown indication
     Route: 065
  18. SYNTHROID [Concomitant]
     Active Substance: LEVOTHYROXINE SODIUM
     Indication: Product used for unknown indication
     Route: 065
  19. OXYCODONE AND ACETAMINOPHEN [Concomitant]
     Active Substance: ACETAMINOPHEN\OXYCODONE HYDROCHLORIDE
     Indication: Product used for unknown indication
     Route: 065
  20. DEVICE [Suspect]
     Active Substance: DEVICE

REACTIONS (34)
  - Neoplasm malignant [Unknown]
  - Head injury [Unknown]
  - Weight bearing difficulty [Unknown]
  - Paralysis [Unknown]
  - Haemorrhage [Unknown]
  - Fall [Recovered/Resolved with Sequelae]
  - Thinking abnormal [Unknown]
  - Post procedural complication [Unknown]
  - Spinal column injury [Unknown]
  - Coccydynia [Unknown]
  - Decreased appetite [Unknown]
  - Weight decreased [Unknown]
  - Rhinorrhoea [Not Recovered/Not Resolved]
  - Sneezing [Not Recovered/Not Resolved]
  - Dermatitis contact [Unknown]
  - Impaired healing [Unknown]
  - Hypoaesthesia [Unknown]
  - Brain fog [Not Recovered/Not Resolved]
  - Gait disturbance [Unknown]
  - Paraesthesia [Unknown]
  - Pain in extremity [Unknown]
  - Fingerprint loss [Unknown]
  - Secretion discharge [Unknown]
  - Allergy to plants [Unknown]
  - Middle ear effusion [Unknown]
  - Hypoacusis [Unknown]
  - Migraine [Unknown]
  - Muscle spasms [Unknown]
  - Hypertension [Unknown]
  - Arthralgia [Unknown]
  - Diarrhoea [Not Recovered/Not Resolved]
  - Nausea [Not Recovered/Not Resolved]
  - Vomiting [Not Recovered/Not Resolved]
  - Device alarm issue [Not Recovered/Not Resolved]

NARRATIVE: CASE EVENT DATE: 20190101
